FAERS Safety Report 16609146 (Version 1)
Quarter: 2019Q3

REPORT INFORMATION
  Report Type: Report from Study
  Country: US (occurrence: US)
  Receive Date: 20190722
  Receipt Date: 20190722
  Transmission Date: 20191004
  Serious: Yes (Hospitalization)
  Sender: FDA-Public Use
  Company Number: US-GILEAD-2019-0419247

PATIENT
  Age: 14 Year
  Sex: Female

DRUGS (1)
  1. AZTREONAM LYSINE [Suspect]
     Active Substance: AZTREONAM LYSINE
     Indication: CYSTIC FIBROSIS
     Dosage: 75 MG, TID FOR 28 DAYS ON AND 28 DAYS OFF
     Route: 065
     Dates: start: 20170526

REACTIONS (2)
  - Viral infection [Not Recovered/Not Resolved]
  - Cystic fibrosis respiratory infection suppression [Unknown]
